FAERS Safety Report 14827279 (Version 1)
Quarter: 2018Q2

REPORT INFORMATION
  Report Type: Spontaneous
  Country: US (occurrence: US)
  Receive Date: 20180430
  Receipt Date: 20180430
  Transmission Date: 20180711
  Serious: No
  Sender: FDA-Public Use
  Company Number: US-ABBVIE-17P-163-2082053-00

PATIENT
  Sex: Female

DRUGS (1)
  1. CREON [Suspect]
     Active Substance: PANCRELIPASE AMYLASE\PANCRELIPASE LIPASE\PANCRELIPASE PROTEASE
     Indication: PANCREATIC FAILURE
     Dosage: 30 MIN BEFORE MEALS
     Route: 048
     Dates: start: 2016

REACTIONS (3)
  - Drug effect incomplete [Recovered/Resolved]
  - Diarrhoea [Recovered/Resolved]
  - Malnutrition [Recovered/Resolved]
